FAERS Safety Report 9666049 (Version 1)
Quarter: 2013Q4

REPORT INFORMATION
  Report Type: Spontaneous
  Country: US (occurrence: US)
  Receive Date: 20131104
  Receipt Date: 20131104
  Transmission Date: 20140711
  Serious: No
  Sender: FDA-Public Use
  Company Number: US-PFIZER INC-2013312833

PATIENT
  Age: 50 Year
  Sex: Male

DRUGS (2)
  1. CADUET [Suspect]
     Indication: HYPERTENSION
     Dosage: UNK
  2. CADUET [Suspect]
     Dosage: [AMLODIPINE BESYLATE 10 MG]/[ATORVASTATIN CALCIUM 40 MG], UNK

REACTIONS (2)
  - Diarrhoea [Unknown]
  - Drug intolerance [Unknown]
